FAERS Safety Report 6787209-7 (Version None)
Quarter: 2010Q2

REPORT INFORMATION
  Report Type: 
  Country: None (occurrence: None)
  Receive Date: 20100621
  Receipt Date: 20100610
  Transmission Date: 20101027
  Serious: Yes (Death, Hospitalization)
  Sender: FDA-Public Use
  Company Number: 013636

PATIENT
  Age: 58 Year
  Sex: Male

DRUGS (6)
  1. KEPPRA [Suspect]
     Indication: STATUS EPILEPTICUS
     Dosage: (ORAL)
     Route: 048
     Dates: start: 20100413, end: 20100504
  2. VANCOMYCIN [Suspect]
     Indication: STAPHYLOCOCCAL INFECTION
     Dates: start: 20100420, end: 20100428
  3. AUGMENTIN '125' [Suspect]
     Indication: STAPHYLOCOCCAL INFECTION
     Dates: start: 20100421, end: 20100428
  4. EPITOMAX (EPITOMAX) [Suspect]
     Dosage: (ORAL)
     Route: 048
     Dates: start: 20100425, end: 20100503
  5. ZELITREX /01269701/ (ZELITREX) [Suspect]
     Dates: start: 20100413, end: 20100528
  6. DEPAKENE [Concomitant]

REACTIONS (5)
  - CYTOLYTIC HEPATITIS [None]
  - HYPERAMMONAEMIA [None]
  - NERVOUS SYSTEM DISORDER [None]
  - OFF LABEL USE [None]
  - STAPHYLOCOCCAL INFECTION [None]
